FAERS Safety Report 4485095-1 (Version None)
Quarter: 2004Q4

REPORT INFORMATION
  Report Type: 
  Country: None (occurrence: None)
  Receive Date: 20041026
  Receipt Date: 20031006
  Transmission Date: 20050328
  Serious: No
  Sender: FDA-Public Use
  Company Number: US-BRISTOL-MYERS SQUIBB COMPANY-12402574

PATIENT
  Sex: Male

DRUGS (1)
  1. GLUCOPHAGE XR [Suspect]
     Route: 048

REACTIONS (2)
  - BLOOD GLUCOSE INCREASED [None]
  - VOMITING [None]
